FAERS Safety Report 20986239 (Version 1)
Quarter: 2022Q2

REPORT INFORMATION
  Report Type: Spontaneous
  Country: US (occurrence: None)
  Receive Date: 20220617
  Receipt Date: 20220617
  Transmission Date: 20220721
  Serious: Yes (Hospitalization)
  Sender: FDA-Public Use
  Company Number: None

PATIENT
  Age: 59 Year
  Sex: Female

DRUGS (12)
  1. AMBRISENTAN [Suspect]
     Active Substance: AMBRISENTAN
     Indication: Pulmonary hypertension
     Dosage: FREQUENCY : DAILY;?
     Route: 048
     Dates: start: 20120724
  2. LACTULOSE [Concomitant]
     Active Substance: LACTULOSE
  3. ASCORBIC ACID [Concomitant]
     Active Substance: ASCORBIC ACID
  4. FULL SPECTRUM B-VITAMIN C [Concomitant]
  5. NORCO [Concomitant]
     Active Substance: ACETAMINOPHEN\HYDROCODONE BITARTRATE
  6. MS CONTIN [Concomitant]
     Active Substance: MORPHINE SULFATE
  7. THIAMINE HYDROCHLORIDE [Concomitant]
     Active Substance: THIAMINE HYDROCHLORIDE
  8. ZINC CHELATED [Concomitant]
  9. OMEPRAZOLE [Concomitant]
     Active Substance: OMEPRAZOLE
  10. MIDODRINE [Concomitant]
     Active Substance: MIDODRINE
  11. ALUTEROL HFA [Concomitant]
  12. VITAMIN B COMPLEX [Concomitant]
     Active Substance: CYANOCOBALAMIN\DEXPANTHENOL\NIACINAMIDE\PYRIDOXINE HYDROCHLORIDE\RIBOFLAVIN 5^-PHOSPHATE SODIUM\THIA

REACTIONS (4)
  - Hepatic encephalopathy [None]
  - Urinary tract infection [None]
  - Escherichia infection [None]
  - Antimicrobial susceptibility test resistant [None]

NARRATIVE: CASE EVENT DATE: 20220528
